FAERS Safety Report 5844709-1 (Version None)
Quarter: 2008Q3

REPORT INFORMATION
  Report Type: 
  Country: None (occurrence: None)
  Receive Date: 20080814
  Receipt Date: 20071029
  Transmission Date: 20090109
  Serious: No
  Sender: FDA-Public Use
  Company Number: US-BAYER-US-2007-040899

PATIENT
  Age: 42 Year
  Sex: Female

DRUGS (1)
  1. MAGNEVIST [Suspect]
     Indication: NUCLEAR MAGNETIC RESONANCE IMAGING
     Dosage: TOTAL DAILY DOSE: 15 ML
     Route: 042
     Dates: start: 20070922, end: 20070922

REACTIONS (4)
  - INJECTION SITE SWELLING [None]
  - PAIN IN EXTREMITY [None]
  - PHLEBITIS [None]
  - VESSEL PUNCTURE SITE HAEMATOMA [None]
